FAERS Safety Report 6999330-9 (Version None)
Quarter: 2010Q3

REPORT INFORMATION
  Report Type: 
  Country: None (occurrence: None)
  Receive Date: 20100920
  Receipt Date: 20090928
  Transmission Date: 20110219
  Serious: Yes (Other)
  Sender: FDA-Public Use
  Company Number: US-ASTRAZENECA-2009UW03070

PATIENT
  Age: 60 Year
  Sex: Female
  Weight: 62.6 kg

DRUGS (3)
  1. SEROQUEL [Suspect]
     Indication: SCHIZOPHRENIA
     Dosage: 20 MG - 50 MG
     Route: 048
     Dates: start: 20040901, end: 20080101
  2. GEODON [Concomitant]
  3. ZYPREXA [Concomitant]
     Indication: DEPRESSION
     Dates: start: 20000101, end: 20080101

REACTIONS (2)
  - LIMB DISCOMFORT [None]
  - TYPE 2 DIABETES MELLITUS [None]
